FAERS Safety Report 26074777 (Version 1)
Quarter: 2025Q4

REPORT INFORMATION
  Report Type: Spontaneous
  Country: US (occurrence: US)
  Receive Date: 20251121
  Receipt Date: 20251121
  Transmission Date: 20260118
  Serious: No
  Sender: BAYER HEALTHCARE LLC
  Company Number: US-BAYER-2025A153941

PATIENT

DRUGS (2)
  1. MIRALAX [Suspect]
     Active Substance: POLYETHYLENE GLYCOL 3350
     Indication: Abnormal faeces
     Dosage: 1 DF, BID
     Route: 048
  2. MIRALAX [Suspect]
     Active Substance: POLYETHYLENE GLYCOL 3350
     Indication: Faecal volume decreased
     Dosage: 1 DF, QD
     Route: 048

REACTIONS (2)
  - Flatulence [Unknown]
  - Product prescribing issue [Unknown]
